FAERS Safety Report 5296708-9 (Version None)
Quarter: 2007Q2

REPORT INFORMATION
  Report Type: 
  Country: None (occurrence: None)
  Receive Date: 20070413
  Receipt Date: 20070402
  Transmission Date: 20071010
  Serious: Yes (Hospitalization)
  Sender: FDA-Public Use
  Company Number: JP-PFIZER INC-2007023999

PATIENT
  Age: 37 Year
  Sex: Female

DRUGS (6)
  1. CETIRIZINE HCL [Suspect]
     Indication: PRURITUS
     Dosage: DAILY DOSE:10MG
     Route: 048
     Dates: start: 20070228, end: 20070319
  2. PREDNISOLONE [Concomitant]
     Indication: PEMPHIGUS
     Route: 048
     Dates: start: 20070201, end: 20070319
  3. PREDNISOLONE [Concomitant]
     Dosage: DAILY DOSE:50MG
     Route: 048
  4. ALENDRONIC ACID [Concomitant]
     Indication: OSTEOPOROSIS
     Dosage: DAILY DOSE:5MG
     Route: 048
     Dates: start: 20070201, end: 20070319
  5. RANITIDINE HYDROCHLORIDE [Concomitant]
     Indication: GASTRITIS
     Dosage: DAILY DOSE:300MG
     Route: 048
     Dates: start: 20070315, end: 20070319
  6. RANITIDINE HYDROCHLORIDE [Concomitant]
     Dosage: DAILY DOSE:100MG
     Route: 048

REACTIONS (9)
  - GAIT DISTURBANCE [None]
  - HEPATIC FAILURE [None]
  - HEPATIC FUNCTION ABNORMAL [None]
  - HEPATITIS VIRAL [None]
  - IMPATIENCE [None]
  - LIVER DISORDER [None]
  - PLATELET COUNT DECREASED [None]
  - RESTLESSNESS [None]
  - WHITE BLOOD CELL COUNT DECREASED [None]
